FAERS Safety Report 17579700 (Version 1)
Quarter: 2020Q1

REPORT INFORMATION
  Report Type: Spontaneous
  Country: US (occurrence: US)
  Receive Date: 20200325
  Receipt Date: 20200325
  Transmission Date: 20200409
  Serious: No
  Sender: FDA-Public Use
  Company Number: US-TEVA-2020-US-1212288

PATIENT
  Sex: Female

DRUGS (9)
  1. VITAMIND [Concomitant]
  2. ADVIL [Concomitant]
     Active Substance: IBUPROFEN
  3. CITALOPRAM [Concomitant]
     Active Substance: CITALOPRAM HYDROBROMIDE
  4. COPAXONE [Suspect]
     Active Substance: GLATIRAMER ACETATE
     Indication: MULTIPLE SCLEROSIS
     Route: 058
     Dates: start: 20180316
  5. CENTRUM [Concomitant]
     Active Substance: VITAMINS
  6. OMEPRAZOLE. [Concomitant]
     Active Substance: OMEPRAZOLE
  7. BIOTIN [Concomitant]
     Active Substance: BIOTIN
  8. ASPIRIN. [Concomitant]
     Active Substance: ASPIRIN
  9. IRON [Concomitant]
     Active Substance: IRON

REACTIONS (4)
  - Fatigue [Not Recovered/Not Resolved]
  - Depression [Not Recovered/Not Resolved]
  - Muscular weakness [Not Recovered/Not Resolved]
  - Depressed mood [Not Recovered/Not Resolved]
